FAERS Safety Report 10050185 (Version 2)
Quarter: 2014Q2

REPORT INFORMATION
  Report Type: Spontaneous
  Country: BE (occurrence: NL)
  Receive Date: 20140401
  Receipt Date: 20140401
  Transmission Date: 20141212
  Serious: Yes (Other)
  Sender: FDA-Public Use
  Company Number: NL-ASTRAZENECA-2014SE18598

PATIENT
  Age: 2803 Week
  Sex: Female
  Weight: 87 kg

DRUGS (1)
  1. ZOLADEX L.A. [Suspect]
     Indication: BREAST CANCER FEMALE
     Route: 058
     Dates: start: 2004

REACTIONS (1)
  - Blood glucose increased [Unknown]
